FAERS Safety Report 7970069-6 (Version None)
Quarter: 2011Q4

REPORT INFORMATION
  Report Type: 
  Country: None (occurrence: None)
  Receive Date: 20111212
  Receipt Date: 20111128
  Transmission Date: 20120403
  Serious: Yes (Death)
  Sender: FDA-Public Use
  Company Number: US-MYLANLABS-2011S1025143

PATIENT
  Age: 27 Year
  Sex: Male

DRUGS (3)
  1. MELPHALAN HYDROCHLORIDE [Suspect]
     Indication: ACUTE MYELOID LEUKAEMIA
  2. BUSULFAN [Suspect]
     Indication: ACUTE MYELOID LEUKAEMIA
  3. FLUDARABINE PHOSPHATE [Suspect]
     Indication: ACUTE MYELOID LEUKAEMIA

REACTIONS (1)
  - LEUKAEMIA RECURRENT [None]
